FAERS Safety Report 20454037 (Version 3)
Quarter: 2022Q2

REPORT INFORMATION
  Report Type: Report from Study
  Country: ES (occurrence: ES)
  Receive Date: 20220210
  Receipt Date: 20220412
  Transmission Date: 20220721
  Serious: Yes (Hospitalization, Disabling, Other)
  Sender: FDA-Public Use
  Company Number: ES-SA-SAC20220205000583

PATIENT
  Sex: Female
  Weight: 73.1 kg

DRUGS (3)
  1. INSULIN GLARGINE [Suspect]
     Active Substance: INSULIN GLARGINE
     Indication: Type 2 diabetes mellitus
     Dosage: 40 IU, QD
     Route: 058
  2. INSULIN GLARGINE [Suspect]
     Active Substance: INSULIN GLARGINE
     Dosage: 10 IU, QD
     Route: 058
  3. APIDRA [Concomitant]
     Active Substance: INSULIN GLULISINE
     Indication: Type 2 diabetes mellitus
     Dosage: UNK UNK, QD
     Route: 058

REACTIONS (18)
  - Bedridden [Unknown]
  - Near death experience [Recovered/Resolved]
  - Fall [Recovering/Resolving]
  - Injury [Unknown]
  - Fracture [Unknown]
  - Tremor [Unknown]
  - Surgery [Unknown]
  - Hyperhidrosis [Unknown]
  - Restlessness [Unknown]
  - Malaise [Unknown]
  - Asthenia [Recovered/Resolved]
  - Blood glucose decreased [Recovered/Resolved]
  - Contusion [Unknown]
  - Vision blurred [Unknown]
  - Blood glucose increased [Unknown]
  - Unevaluable event [Unknown]
  - Product storage error [Unknown]
  - Intentional product use issue [Unknown]
